FAERS Safety Report 7892260-X (Version None)
Quarter: 2011Q4

REPORT INFORMATION
  Report Type: 
  Country: None (occurrence: None)
  Receive Date: 20111104
  Receipt Date: 20070502
  Transmission Date: 20120403
  Serious: No
  Sender: FDA-Public Use
  Company Number: 2007BI010032

PATIENT
  Sex: Female

DRUGS (6)
  1. PRISTIQ [Concomitant]
     Indication: DEPRESSION
     Dates: start: 20080101
  2. TOPAMAX [Concomitant]
     Indication: TRIGEMINAL NEURALGIA
     Dates: start: 19980101
  3. TYSABRI [Suspect]
     Indication: MULTIPLE SCLEROSIS
     Route: 042
     Dates: start: 20070124, end: 20070321
  4. WELLBUTRIN [Concomitant]
     Indication: DEPRESSION
     Dates: start: 20110301
  5. TYSABRI [Suspect]
     Route: 042
     Dates: start: 20110524
  6. TOPAMAX [Concomitant]
     Indication: HEADACHE
     Dates: start: 19980101

REACTIONS (16)
  - HYPOAESTHESIA [None]
  - MULTIPLE SCLEROSIS RELAPSE [None]
  - DYSKINESIA [None]
  - FEELING ABNORMAL [None]
  - FEELING COLD [None]
  - DRUG INEFFECTIVE [None]
  - FALL [None]
  - ARTHROPATHY [None]
  - SYNCOPE [None]
  - FATIGUE [None]
  - ARTHRALGIA [None]
  - BLOOD PRESSURE INCREASED [None]
  - ARTHRITIS [None]
  - CONTUSION [None]
  - LOSS OF CONTROL OF LEGS [None]
  - OSTEOPOROSIS [None]
